FAERS Safety Report 5013733-3 (Version None)
Quarter: 2006Q2

REPORT INFORMATION
  Report Type: 
  Country: None (occurrence: None)
  Receive Date: 20060525
  Receipt Date: 20060511
  Transmission Date: 20061013
  Serious: Yes (Hospitalization)
  Sender: FDA-Public Use
  Company Number: CLOF-10226

PATIENT
  Age: 5 Year
  Sex: Male
  Weight: 18.2 kg

DRUGS (10)
  1. CLOFARABINE [Suspect]
     Indication: ACUTE LYMPHOCYTIC LEUKAEMIA
     Dosage: 15 MG QD X 5 IV
     Route: 042
     Dates: start: 20060311, end: 20060412
  2. CLOFARABINE [Suspect]
     Indication: T-CELL TYPE ACUTE LEUKAEMIA
     Dosage: 15 MG QD X 5 IV
     Route: 042
     Dates: start: 20060311, end: 20060412
  3. ETOPOSIDE [Suspect]
     Indication: ACUTE LYMPHOCYTIC LEUKAEMIA
     Dosage: 56 MG IV
     Route: 042
     Dates: start: 20060311, end: 20060412
  4. ETOPOSIDE [Suspect]
     Indication: T-CELL TYPE ACUTE LEUKAEMIA
     Dosage: 56 MG IV
     Route: 042
     Dates: start: 20060311, end: 20060412
  5. CYCLOPHOSPHAMIDE [Suspect]
     Indication: ACUTE LYMPHOCYTIC LEUKAEMIA
     Dosage: 255 MG IV
     Route: 042
     Dates: start: 20060311, end: 20060412
  6. CYCLOPHOSPHAMIDE [Suspect]
     Indication: T-CELL TYPE ACUTE LEUKAEMIA
     Dosage: 255 MG IV
     Route: 042
     Dates: start: 20060311, end: 20060412
  7. DAPSONE [Concomitant]
  8. NEUPOGEN [Concomitant]
  9. CIPROFLOXIN [Concomitant]
  10. FLUCONAZOLE [Concomitant]

REACTIONS (6)
  - BK VIRUS INFECTION [None]
  - CYSTITIS HAEMORRHAGIC [None]
  - FEBRILE NEUTROPENIA [None]
  - GASTROINTESTINAL DISORDER [None]
  - PLATELET COUNT DECREASED [None]
  - VIRUS URINE TEST POSITIVE [None]
